FAERS Safety Report 10446535 (Version 1)
Quarter: 2014Q3

REPORT INFORMATION
  Report Type: Spontaneous
  Country: US (occurrence: None)
  Receive Date: 20140910
  Receipt Date: 20140910
  Transmission Date: 20150326
  Serious: Yes (Disabling)
  Sender: FDA-Public Use
  Company Number: None

PATIENT
  Age: 45 Year
  Sex: Female
  Weight: 68.04 kg

DRUGS (1)
  1. MIRENA [Suspect]
     Active Substance: LEVONORGESTREL
     Dates: start: 20091228, end: 20100228

REACTIONS (13)
  - Anxiety [None]
  - Fatigue [None]
  - Temperature intolerance [None]
  - Nausea [None]
  - Acne [None]
  - Depression [None]
  - Abdominal distension [None]
  - Breast pain [None]
  - Constipation [None]
  - Back pain [None]
  - Dizziness [None]
  - Migraine [None]
  - Haemorrhage [None]

NARRATIVE: CASE EVENT DATE: 20091228
